FAERS Safety Report 13500690 (Version 3)
Quarter: 2017Q4

REPORT INFORMATION
  Report Type: Spontaneous
  Country: US (occurrence: US)
  Receive Date: 20170501
  Receipt Date: 20171002
  Transmission Date: 20180320
  Serious: Yes (Hospitalization)
  Sender: FDA-Public Use
  Company Number: US-ACTELION-A-NJ2017-153132

PATIENT
  Age: 66 Year
  Sex: Female
  Weight: 66.21 kg

DRUGS (4)
  1. REVATIO [Concomitant]
     Active Substance: SILDENAFIL CITRATE
  2. VELETRI [Suspect]
     Active Substance: EPOPROSTENOL
     Indication: PULMONARY HYPERTENSION
     Dosage: 25.42 NG/KG, PER MIN
     Route: 042
  3. DILTIAZEM. [Concomitant]
     Active Substance: DILTIAZEM
  4. COUMADIN [Concomitant]
     Active Substance: WARFARIN SODIUM

REACTIONS (8)
  - Heart rate increased [Unknown]
  - Catheter placement [Unknown]
  - Dyspnoea exertional [Unknown]
  - Road traffic accident [Unknown]
  - Lower limb fracture [Recovered/Resolved]
  - Pain [Unknown]
  - Weight decreased [Unknown]
  - Decubitus ulcer [Unknown]

NARRATIVE: CASE EVENT DATE: 20170414
